FAERS Safety Report 23215139 (Version 1)
Quarter: 2023Q4

REPORT INFORMATION
  Report Type: Report from Study
  Country: CN (occurrence: CN)
  Receive Date: 20231122
  Receipt Date: 20231122
  Transmission Date: 20240110
  Serious: Yes (Hospitalization)
  Sender: FDA-Public Use
  Company Number: CN-LaNova Medicines Development Co., Ltd.-2023-LDM-108-00216

PATIENT

DRUGS (17)
  1. TORIPALIMAB [Suspect]
     Active Substance: TORIPALIMAB
     Indication: Nasopharyngeal cancer
     Dosage: 240 MG, Q3W
     Route: 041
     Dates: start: 20230519, end: 20230519
  2. TORIPALIMAB [Suspect]
     Active Substance: TORIPALIMAB
     Dosage: 240 MG, Q3W
     Route: 041
     Dates: start: 20230609, end: 20230609
  3. TORIPALIMAB [Suspect]
     Active Substance: TORIPALIMAB
     Dosage: 240 MG, Q3W
     Route: 041
     Dates: start: 20230630, end: 20230630
  4. TORIPALIMAB [Suspect]
     Active Substance: TORIPALIMAB
     Dosage: 240 MG, Q3W
     Route: 041
     Dates: start: 20230721, end: 20230721
  5. TORIPALIMAB [Suspect]
     Active Substance: TORIPALIMAB
     Dosage: 240 MG, Q3W
     Route: 041
     Dates: start: 20230811, end: 20230811
  6. INVESTIGATIONAL PRODUCT [Suspect]
     Active Substance: INVESTIGATIONAL PRODUCT
     Indication: Nasopharyngeal cancer
     Dosage: 550 MG, Q3WEEKS
     Route: 041
     Dates: start: 20230519, end: 20230519
  7. INVESTIGATIONAL PRODUCT [Suspect]
     Active Substance: INVESTIGATIONAL PRODUCT
     Dosage: 547.5 MG, Q3WEEKS
     Route: 041
     Dates: start: 20230609, end: 20230609
  8. INVESTIGATIONAL PRODUCT [Suspect]
     Active Substance: INVESTIGATIONAL PRODUCT
     Dosage: 545 MG, Q3WEEKS
     Route: 041
     Dates: start: 20230630, end: 20230630
  9. INVESTIGATIONAL PRODUCT [Suspect]
     Active Substance: INVESTIGATIONAL PRODUCT
     Dosage: 530 MG, Q3WEEKS
     Route: 041
     Dates: start: 20230721, end: 20230721
  10. INVESTIGATIONAL PRODUCT [Suspect]
     Active Substance: INVESTIGATIONAL PRODUCT
     Dosage: 525 MG, Q3WEEKS
     Route: 041
     Dates: start: 20230811, end: 20230811
  11. THEOPHYLLINE SODIUM AMINOACETATE [Concomitant]
     Indication: Dyspnoea
     Dosage: 0.2 G, BID
     Route: 048
     Dates: start: 20230905
  12. BECLOMETHASONE DIPROPIONATE\FORMOTEROL [Concomitant]
     Active Substance: BECLOMETHASONE DIPROPIONATE\FORMOTEROL
     Indication: Pneumonitis
     Dosage: 2 {DF}, BID
     Route: 055
     Dates: start: 20230905, end: 20230909
  13. MOXIFLOXACIN [Concomitant]
     Active Substance: MOXIFLOXACIN
     Indication: Pneumonitis
     Dosage: 400 MG, QD
     Route: 042
     Dates: start: 20230905, end: 20230909
  14. PREDNISONE ACETATE [Concomitant]
     Active Substance: PREDNISONE ACETATE
     Indication: Pneumonitis
     Dosage: 20 MG, QD
     Route: 048
     Dates: start: 20230907
  15. IPRATROPIUM BROMIDE [Concomitant]
     Active Substance: IPRATROPIUM BROMIDE\IPRATROPIUM BROMIDE ANHYDROUS
     Indication: Cough
     Dosage: 2 ML, Q8H
     Route: 055
     Dates: start: 20230903, end: 20230909
  16. MONTELUKAST [Concomitant]
     Active Substance: MONTELUKAST SODIUM
     Indication: Cough
     Dosage: 10 MG, QN
     Route: 048
     Dates: start: 20230906, end: 20230909
  17. ESOMEPRAZOLE MAGNESIUM [Concomitant]
     Active Substance: ESOMEPRAZOLE\ESOMEPRAZOLE MAGNESIUM\ESOMEPRAZOLE MAGNESIUM DIHYDRATE
     Indication: Gastrointestinal disorder prophylaxis
     Dosage: 20 MG, QD
     Route: 048
     Dates: start: 20230801

REACTIONS (1)
  - Asthma [Recovering/Resolving]

NARRATIVE: CASE EVENT DATE: 20230920
